FAERS Safety Report 18205317 (Version 1)
Quarter: 2020Q3

REPORT INFORMATION
  Report Type: Spontaneous
  Country: CN (occurrence: CN)
  Receive Date: 20200827
  Receipt Date: 20200827
  Transmission Date: 20201103
  Serious: Yes (Hospitalization)
  Sender: FDA-Public Use
  Company Number: CN-PFIZER INC-2020331885

PATIENT
  Age: 55 Year
  Sex: Female
  Weight: 55 kg

DRUGS (3)
  1. LIPITOR [Suspect]
     Active Substance: ATORVASTATIN CALCIUM
     Indication: ARTERIOSCLEROSIS
     Dosage: 20 MG, 1X/DAY
     Route: 048
     Dates: start: 20200626, end: 20200731
  2. SI KAO LIN [Suspect]
     Active Substance: CITICOLINE SODIUM
     Indication: CEREBRAL HAEMORRHAGE
     Dosage: 0.2 G, 3X/DAY
     Route: 048
     Dates: start: 20200706, end: 20200716
  3. IRBESARTAN. [Suspect]
     Active Substance: IRBESARTAN
     Indication: HYPERTENSION
     Dosage: 0.15 G, 1X/DAY
     Route: 048
     Dates: start: 20200715, end: 20200716

REACTIONS (1)
  - Hepatic function abnormal [Recovered/Resolved]

NARRATIVE: CASE EVENT DATE: 20200730
